FAERS Safety Report 23994651 (Version 1)
Quarter: 2024Q2

REPORT INFORMATION
  Report Type: Spontaneous
  Country: US (occurrence: US)
  Receive Date: 20240620
  Receipt Date: 20240620
  Transmission Date: 20240716
  Serious: No
  Sender: FDA-Public Use
  Company Number: US-BAYER-2024A088287

PATIENT
  Age: 72 Year
  Sex: Male

DRUGS (1)
  1. ASTEPRO [Suspect]
     Active Substance: AZELASTINE HYDROCHLORIDE
     Dosage: TWO SPRAYS IN EACH NOSTRIL 7PM DOSE

REACTIONS (1)
  - Tongue blistering [Recovering/Resolving]

NARRATIVE: CASE EVENT DATE: 20240618
